FAERS Safety Report 8935831 (Version 3)
Quarter: 2012Q4

REPORT INFORMATION
  Report Type: 
  Country: ZA (occurrence: ZA)
  Receive Date: 20121130
  Receipt Date: 20121218
  Transmission Date: 20130627
  Serious: No
  Sender: FDA-Public Use
  Company Number: ZA-ASTELLAS-2012EU010396

PATIENT
  Age: 68 Year
  Sex: Female

DRUGS (2)
  1. VESICARE [Suspect]
     Indication: HYPERTONIC BLADDER
     Dosage: 1 DF, Unknown/D
     Route: 048
     Dates: start: 20121024, end: 20121123
  2. SIMVASTATIN [Concomitant]
     Indication: BLOOD CHOLESTEROL
     Dosage: 10 mg, Unknown/D
     Route: 048
     Dates: start: 20100119

REACTIONS (4)
  - Feeling abnormal [Unknown]
  - Dry mouth [Unknown]
  - Nasal dryness [Unknown]
  - Dry throat [Unknown]
